FAERS Safety Report 5885933-1 (Version None)
Quarter: 2008Q3

REPORT INFORMATION
  Report Type: 
  Country: None (occurrence: None)
  Receive Date: 20080917
  Receipt Date: 20080911
  Transmission Date: 20090109
  Serious: Yes (Hospitalization)
  Sender: FDA-Public Use
  Company Number: BR-ABBOTT-08P-020-0476089-00

PATIENT
  Age: 20 Year
  Sex: Male
  Weight: 54 kg

DRUGS (4)
  1. DEPAKENE [Suspect]
     Indication: EPILEPSY
     Dosage: 250MG TABLETS-1500MG DAILY
     Route: 048
     Dates: start: 20080903
  2. DEPAKENE [Suspect]
     Dosage: 500MG TABLETS
  3. PHENOBARBITAL TAB [Concomitant]
     Indication: EPILEPSY
     Route: 048
     Dates: start: 20010101
  4. PHENYTOIN [Concomitant]
     Indication: CONVULSION
     Route: 042

REACTIONS (3)
  - ABDOMINAL PAIN UPPER [None]
  - CONVULSION [None]
  - HEADACHE [None]
